FAERS Safety Report 16387416 (Version 1)
Quarter: 2019Q2

REPORT INFORMATION
  Report Type: Spontaneous
  Country: US (occurrence: US)
  Receive Date: 20190604
  Receipt Date: 20190604
  Transmission Date: 20190711
  Serious: No
  Sender: FDA-Public Use
  Company Number: US-TEVA-2019-US-1048953

PATIENT
  Age: 69 Year
  Sex: Female

DRUGS (7)
  1. CLARITHROMYCIN. [Concomitant]
     Active Substance: CLARITHROMYCIN
  2. ERYTHROMYCIN. [Concomitant]
     Active Substance: ERYTHROMYCIN
     Indication: ANTIBIOTIC THERAPY
  3. PROAIR RESPICLICK [Suspect]
     Active Substance: ALBUTEROL SULFATE
     Indication: PRODUCT USED FOR UNKNOWN INDICATION
     Dosage: 2 PUFFS EVERY 4-6 HOURS AS NEEDED
  4. PREDNISONE. [Concomitant]
     Active Substance: PREDNISONE
  5. PROMETHAZINE LIQUID [Concomitant]
  6. PANTOPRAZOLE [Concomitant]
     Active Substance: PANTOPRAZOLE
  7. BENZOCAINE. [Concomitant]
     Active Substance: BENZOCAINE
     Indication: COUGH

REACTIONS (4)
  - Tremor [Unknown]
  - Dizziness [Unknown]
  - Drug ineffective [Unknown]
  - Product substitution issue [Unknown]
